FAERS Safety Report 21021455 (Version 1)
Quarter: 2022Q2

REPORT INFORMATION
  Report Type: Spontaneous
  Country: US (occurrence: US)
  Receive Date: 20220629
  Receipt Date: 20220629
  Transmission Date: 20220720
  Serious: No
  Sender: FDA-Public Use
  Company Number: US-BEH-2022146846

PATIENT
  Sex: Female

DRUGS (1)
  1. HIZENTRA [Suspect]
     Active Substance: HUMAN IMMUNOGLOBULIN G
     Indication: Selective IgG subclass deficiency
     Dosage: 20 GRAM, QOW
     Route: 058
     Dates: start: 202111

REACTIONS (2)
  - Infusion site extravasation [Unknown]
  - Incorrect dose administered [Unknown]
